FAERS Safety Report 23158291 (Version 1)
Quarter: 2023Q4

REPORT INFORMATION
  Report Type: Other
  Country: DE (occurrence: DE)
  Receive Date: 20231108
  Receipt Date: 20231108
  Transmission Date: 20240110
  Serious: Yes (Hospitalization, Other)
  Sender: FDA-Public Use
  Company Number: DE-MACLEODS PHARMACEUTICALS US LTD-MAC2023044178

PATIENT

DRUGS (10)
  1. VALSARTAN [Suspect]
     Active Substance: VALSARTAN
     Indication: Essential hypertension
     Dosage: 160 MILLIGRAM, QD (START DATE: 2015) (STOP DATE: 2018)
     Route: 065
  2. IBUPROFEN [Suspect]
     Active Substance: IBUPROFEN
     Indication: Product used for unknown indication
     Dosage: UNK
     Route: 065
  3. VALSARTAN [Suspect]
     Active Substance: VALSARTAN
     Indication: Essential hypertension
     Dosage: 160 MILLIGRAM, QD (DAILY IN THE MORNING) (STOP DATE: FEB 2019)
     Route: 065
     Dates: start: 20141001
  4. VALSARTAN [Suspect]
     Active Substance: VALSARTAN
     Dosage: 80 MILLIGRAM, QD
     Route: 065
  5. VALSARTAN [Suspect]
     Active Substance: VALSARTAN
     Dosage: 160 MILLIGRAM, QD (START DATE: 2015) (STOP DATE: 2018) (1 A PHARMA)
     Route: 065
  6. BISOPROLOL [Concomitant]
     Active Substance: BISOPROLOL\BISOPROLOL FUMARATE
     Indication: Product used for unknown indication
     Dosage: 5 MILLIGRAM (5 MG, N3)
     Route: 065
  7. VALSARTAN [Concomitant]
     Active Substance: VALSARTAN
     Indication: Hypertension
     Dosage: 160 MILLIGRAM (START DATE: FEB 2019)
     Route: 065
  8. CIPRO [Concomitant]
     Active Substance: CIPROFLOXACIN HYDROCHLORIDE
     Indication: Product used for unknown indication
     Dosage: 500 MILLIGRAM
     Route: 065
  9. CIPRO [Concomitant]
     Active Substance: CIPROFLOXACIN HYDROCHLORIDE
     Dosage: 250 MILLIGRAM
     Route: 065
  10. NITRENDIPINE [Concomitant]
     Active Substance: NITRENDIPINE
     Indication: Product used for unknown indication
     Dosage: UNK
     Route: 048

REACTIONS (29)
  - Pulmonary granuloma [Unknown]
  - Hilar lymphadenopathy [Recovering/Resolving]
  - Pulmonary mass [Unknown]
  - Middle lobe syndrome [Unknown]
  - Lymphadenopathy [Unknown]
  - Osteochondrosis [Unknown]
  - Gastrointestinal neoplasm [Unknown]
  - Hypothyroidism [Unknown]
  - Neoplasm malignant [Unknown]
  - Brain injury [Unknown]
  - Hernia [Unknown]
  - Oedema mucosal [Unknown]
  - Skin mass [Unknown]
  - Mental disorder [Unknown]
  - General physical health deterioration [Unknown]
  - Fear [Unknown]
  - Emotional distress [Unknown]
  - Rib fracture [Unknown]
  - Flatulence [Unknown]
  - Insomnia [Unknown]
  - Suspected product contamination [Unknown]
  - Paranasal cyst [Unknown]
  - Chilaiditi^s syndrome [Unknown]
  - Liver disorder [Unknown]
  - Obesity [Unknown]
  - Hypertrophy [Unknown]
  - Drug hypersensitivity [Unknown]
  - Headache [Unknown]
  - Nausea [Unknown]

NARRATIVE: CASE EVENT DATE: 20200113
